FAERS Safety Report 8957614 (Version 3)
Quarter: 2014Q2

REPORT INFORMATION
  Report Type: Report from Study
  Country: KR (occurrence: KR)
  Receive Date: 20121210
  Receipt Date: 20140523
  Transmission Date: 20141212
  Serious: Yes (Hospitalization)
  Sender: FDA-Public Use
  Company Number: KR-PFIZER INC-2012304237

PATIENT
  Age: 54 Year
  Sex: Male
  Weight: 69 kg

DRUGS (12)
  1. AXITINIB [Suspect]
     Indication: HEPATOCELLULAR CARCINOMA
     Dosage: 5 MG, 2X/DAY
     Route: 048
     Dates: start: 20120410, end: 20121120
  2. DOXORUBICIN [Suspect]
     Indication: HEPATOCELLULAR CARCINOMA
     Dosage: 100 MG, 1X/DAY
     Route: 042
     Dates: start: 20121120, end: 20121120
  3. VITAMIN B COMPLEX [Concomitant]
     Indication: VITAMIN SUPPLEMENTATION
     Dosage: 1 TABLET, 1X/DAY
     Route: 048
     Dates: start: 20110812
  4. DEXTROSE [Concomitant]
     Indication: NUTRITIONAL SUPPLEMENTATION
     Dosage: 200 ML, 1X/DAY
     Route: 042
     Dates: start: 20121120, end: 20121120
  5. ENTECAVIR [Concomitant]
     Indication: HEPATITIS B
     Dosage: 0.5 MG, 1X/DAY
     Route: 048
     Dates: start: 20110810
  6. FILGRASTIM [Concomitant]
     Indication: PROPHYLAXIS
     Dosage: 75 MG, 1X/DAY
     Route: 042
     Dates: start: 20121127, end: 20121127
  7. GRANISETRON [Concomitant]
     Indication: PROPHYLAXIS OF NAUSEA AND VOMITING
     Dosage: 1 MG, 1X/DAY
     Route: 042
     Dates: start: 20121120, end: 20121120
  8. METOCLOPRAMIDE [Concomitant]
     Indication: DYSPEPSIA
     Dosage: 5 MG, 3X/DAY
     Route: 048
     Dates: start: 20120925
  9. PHAZYME [Concomitant]
     Indication: DYSPEPSIA
     Dosage: 1 TABLET, 3X/DAY
     Route: 048
     Dates: start: 20120925
  10. RABEPRAZOLE [Concomitant]
     Indication: DYSPEPSIA
     Dosage: 10 MG, 1X/DAY
     Route: 048
     Dates: start: 20120925
  11. SILYMARIN [Concomitant]
     Indication: PROPHYLAXIS
     Dosage: 140 MG, 2X/DAY
     Route: 048
     Dates: start: 20110812
  12. URSA [Concomitant]
     Indication: PROPHYLAXIS
     Dosage: 20 MG, 3X/DAY
     Route: 048
     Dates: start: 20110812

REACTIONS (3)
  - Febrile neutropenia [Recovered/Resolved]
  - Epistaxis [Recovered/Resolved]
  - Otitis media [Recovered/Resolved]
